FAERS Safety Report 4926498-8 (Version None)
Quarter: 2006Q1

REPORT INFORMATION
  Report Type: 
  Country: None (occurrence: None)
  Receive Date: 20060228
  Receipt Date: 20050421
  Transmission Date: 20060701
  Serious: No
  Sender: FDA-Public Use
  Company Number: US-GLAXOSMITHKLINE-A0555197A

PATIENT
  Age: 24 Year
  Sex: Female

DRUGS (3)
  1. LAMICTAL [Suspect]
     Indication: BIPOLAR DISORDER
     Dosage: 200MG PER DAY
     Route: 048
  2. ZOLOFT [Concomitant]
  3. LEXAPRO [Concomitant]

REACTIONS (3)
  - DERMATITIS ACNEIFORM [None]
  - SKIN EXFOLIATION [None]
  - SUNBURN [None]
